FAERS Safety Report 6103206-9 (Version None)
Quarter: 2009Q1

REPORT INFORMATION
  Report Type: 
  Country: None (occurrence: None)
  Receive Date: 20090227
  Receipt Date: 20090212
  Transmission Date: 20090719
  Serious: Yes (Hospitalization)
  Sender: FDA-Public Use
  Company Number: 0360

PATIENT
  Sex: Female

DRUGS (7)
  1. METHYLDOPA [Suspect]
     Dosage: 750 MG/2000 MG, PO
     Route: 048
  2. HYDRALAZINE HCL [Suspect]
     Indication: BLOOD PRESSURE ABNORMAL
     Dosage: IV
     Route: 042
  3. LABETALOL HYDROCHLORIDE [Suspect]
     Dosage: 200 MG
  4. NIFEDIPINE [Suspect]
     Indication: BLOOD PRESSURE ABNORMAL
     Dosage: 1, UNK
  5. ASPIRIN [Concomitant]
  6. BETAMETHASONE [Concomitant]
  7. DALTEPARIN SODIUM [Concomitant]

REACTIONS (7)
  - BLOOD GLUCOSE DECREASED [None]
  - BLOOD PRESSURE INCREASED [None]
  - CAESAREAN SECTION [None]
  - DRUG EXPOSURE DURING PREGNANCY [None]
  - FOETAL GROWTH RETARDATION [None]
  - MATERNAL DRUGS AFFECTING FOETUS [None]
  - PREMATURE BABY [None]
